FAERS Safety Report 12647998 (Version 1)
Quarter: 2016Q3

REPORT INFORMATION
  Report Type: Spontaneous
  Country: US (occurrence: None)
  Receive Date: 20160811
  Receipt Date: 20160811
  Transmission Date: 20161109
  Serious: Yes (Hospitalization)
  Sender: FDA-Public Use
  Company Number: None

PATIENT
  Age: 80 Year
  Sex: Male

DRUGS (8)
  1. CARVEDILOL. [Concomitant]
     Active Substance: CARVEDILOL
  2. JAKAFI [Concomitant]
     Active Substance: RUXOLITINIB
  3. PROCRIT [Suspect]
     Active Substance: ERYTHROPOIETIN
     Indication: PACKED RED BLOOD CELL TRANSFUSION
     Route: 058
     Dates: start: 20151210
  4. LOSARTAN POT [Concomitant]
     Active Substance: LOSARTAN POTASSIUM
  5. TERAZOSIN [Concomitant]
     Active Substance: TERAZOSIN\TERAZOSIN HYDROCHLORIDE
  6. PROCRIT [Suspect]
     Active Substance: ERYTHROPOIETIN
     Indication: HAEMOCHROMATOSIS
     Route: 058
     Dates: start: 20151210
  7. COLCHICINE. [Concomitant]
     Active Substance: COLCHICINE
  8. ALLOPURINOL. [Concomitant]
     Active Substance: ALLOPURINOL

REACTIONS (4)
  - Spleen disorder [None]
  - Malnutrition [None]
  - Hypophagia [None]
  - Arthritis [None]

NARRATIVE: CASE EVENT DATE: 201608
